FAERS Safety Report 7752684-8 (Version None)
Quarter: 2011Q3

REPORT INFORMATION
  Report Type: 
  Country: None (occurrence: None)
  Receive Date: 20110915
  Receipt Date: 20110909
  Transmission Date: 20111222
  Serious: Yes (Other)
  Sender: FDA-Public Use
  Company Number: CA-PFIZER INC-2011212467

PATIENT
  Age: 76 Year
  Sex: Female

DRUGS (2)
  1. COSOPT [Concomitant]
     Indication: GLAUCOMA
     Dosage: ONE DROP IN BOTH EYES 1X/DAILY
     Route: 047
  2. XALATAN [Suspect]
     Indication: GLAUCOMA
     Dosage: 1 DROP IN BOTH EYES ONCE DAILY
     Route: 047
     Dates: start: 19950101

REACTIONS (1)
  - INTRAOCULAR PRESSURE INCREASED [None]
